FAERS Safety Report 8050258-5 (Version None)
Quarter: 2012Q1

REPORT INFORMATION
  Report Type: 
  Country: None (occurrence: None)
  Receive Date: 20120117
  Receipt Date: 20120110
  Transmission Date: 20120608
  Serious: Yes (Other)
  Sender: FDA-Public Use
  Company Number: US-PFIZER INC-2012008154

PATIENT
  Age: 80 Year
  Sex: Female

DRUGS (4)
  1. CALTRATE + D [Concomitant]
  2. PROVERA [Suspect]
     Indication: OFF LABEL USE
     Dosage: UNK
     Dates: start: 19620101
  3. MULTI-VITAMINS [Concomitant]
  4. PROVERA [Suspect]
     Indication: METRORRHAGIA

REACTIONS (1)
  - OSTEOPOROSIS [None]
